FAERS Safety Report 7484632-2 (Version None)
Quarter: 2011Q2

REPORT INFORMATION
  Report Type: 
  Country: None (occurrence: None)
  Receive Date: 20110517
  Receipt Date: 20100804
  Transmission Date: 20111010
  Serious: Yes (Other)
  Sender: FDA-Public Use
  Company Number: US-BAYER-200941469NA

PATIENT
  Age: 22 Year
  Sex: Female
  Weight: 74.83 kg

DRUGS (5)
  1. YAZ [Suspect]
     Indication: PREMENSTRUAL SYNDROME
     Dosage: UNK UNK, QD
     Dates: start: 20080401, end: 20080501
  2. PERCOCET [Concomitant]
  3. YASMIN [Suspect]
     Indication: PRODUCT USED FOR UNKNOWN INDICATION
     Dosage: 1 DF (DAILY DOSE), QD, ORAL
     Route: 048
  4. NITROFURANT MACRO [Concomitant]
  5. PHENTERMINE [Concomitant]
     Dosage: 37.5 MG, UNK
     Dates: start: 20080801

REACTIONS (7)
  - INTRACARDIAC THROMBUS [None]
  - DEEP VEIN THROMBOSIS [None]
  - THROMBOSIS [None]
  - PHLEBITIS [None]
  - OEDEMA PERIPHERAL [None]
  - PAIN IN EXTREMITY [None]
  - PYREXIA [None]
